FAERS Safety Report 24405313 (Version 1)
Quarter: 2024Q4

REPORT INFORMATION
  Report Type: Spontaneous
  Country: US (occurrence: US)
  Receive Date: 20241007
  Receipt Date: 20241007
  Transmission Date: 20250115
  Serious: Yes (Death, Hospitalization)
  Sender: MYLAN
  Company Number: US-MYLANLABS-2024M1090562

PATIENT
  Age: 49 Year
  Sex: Female

DRUGS (4)
  1. MILRINONE [Suspect]
     Active Substance: MILRINONE
     Indication: Right-to-left cardiac shunt
     Dosage: UNK (DRIP)
     Route: 042
  2. SILDENAFIL [Suspect]
     Active Substance: SILDENAFIL
     Indication: Right-to-left cardiac shunt
     Dosage: UNK
     Route: 065
  3. CARDENE [Suspect]
     Active Substance: NICARDIPINE HYDROCHLORIDE
     Indication: Right-to-left cardiac shunt
     Dosage: UNK (DRIP)
     Route: 042
  4. NITRIC OXIDE [Suspect]
     Active Substance: NITRIC OXIDE
     Indication: Right-to-left cardiac shunt
     Dosage: UNK (RESPIRATORY)
     Route: 055

REACTIONS (2)
  - Drug ineffective for unapproved indication [Fatal]
  - Off label use [Unknown]
